FAERS Safety Report 13844963 (Version 1)
Quarter: 2017Q3

REPORT INFORMATION
  Report Type: Report from Study
  Country: PH (occurrence: PH)
  Receive Date: 20170808
  Receipt Date: 20170808
  Transmission Date: 20171127
  Serious: Yes (Other)
  Sender: FDA-Public Use
  Company Number: PHHY2016PH009030

PATIENT
  Age: 81 Year
  Sex: Male

DRUGS (6)
  1. TASIGNA [Suspect]
     Active Substance: NILOTINIB
     Indication: CHRONIC MYELOID LEUKAEMIA
     Dosage: 800 MG, QD
     Route: 048
     Dates: start: 20130718
  2. PANTOPRAZOLE [Concomitant]
     Active Substance: PANTOPRAZOLE
     Indication: ABDOMINAL PAIN
     Dosage: UNK UNK, QD
     Route: 065
     Dates: start: 2014
  3. DOXOFYLLINE [Concomitant]
     Active Substance: DOXOFYLLINE
     Indication: PRODUCT USED FOR UNKNOWN INDICATION
     Dosage: 400 MG, QD
     Route: 065
  4. MOTILIUM [Concomitant]
     Active Substance: DOMPERIDONE
     Indication: ABDOMINAL PAIN
     Dosage: UNK
     Route: 065
     Dates: start: 2014
  5. DUTASTERIDE/TAMSULOSINEHYDROCHLORIDE FISHER [Concomitant]
     Active Substance: DUTASTERIDE\TAMSULOSIN HYDROCHLORIDE
     Indication: PRODUCT USED FOR UNKNOWN INDICATION
     Dosage: UNK
     Route: 065
     Dates: start: 20170602
  6. ESOMEPRAZOL [Concomitant]
     Active Substance: ESOMEPRAZOLE
     Indication: PRODUCT USED FOR UNKNOWN INDICATION
     Dosage: 40 MG, QDX2 WEEKS (2-16 JUN 2017)
     Route: 065

REACTIONS (11)
  - Chest pain [Unknown]
  - Malaise [Recovered/Resolved]
  - Aortic arteriosclerosis [Unknown]
  - Oedema peripheral [Unknown]
  - Chronic myeloid leukaemia [Unknown]
  - Cardiomegaly [Unknown]
  - Drug intolerance [Unknown]
  - Aortic valve sclerosis [Unknown]
  - Spinal osteoarthritis [Unknown]
  - Left ventricular hypertrophy [Unknown]
  - Dyspnoea [Unknown]

NARRATIVE: CASE EVENT DATE: 201705
